FAERS Safety Report 6245795-X (Version None)
Quarter: 2009Q2

REPORT INFORMATION
  Report Type: 
  Country: None (occurrence: None)
  Receive Date: 20090624
  Receipt Date: 20090616
  Transmission Date: 20091009
  Serious: Yes (Hospitalization)
  Sender: FDA-Public Use
  Company Number: SPV1-2008-02542

PATIENT
  Age: 12 Year
  Sex: Male

DRUGS (5)
  1. ELAPRASE [Suspect]
     Indication: MUCOPOLYSACCHARIDOSIS II
     Dosage: 0.5 MG/KG, 1X/WEEK, IV DRIP
     Route: 041
     Dates: start: 20080925
  2. SALBUTAMOL (SALBUTAMOL) [Concomitant]
  3. FLUTICASONE PROPIONATE [Concomitant]
  4. DIPHENHYDRAMINE HCL [Concomitant]
  5. ROZEREM [Concomitant]

REACTIONS (3)
  - CENTRAL VENOUS CATHETERISATION [None]
  - GASTROINTESTINAL TUBE INSERTION [None]
  - POST PROCEDURAL PNEUMONIA [None]
